FAERS Safety Report 16608207 (Version 1)
Quarter: 2019Q3

REPORT INFORMATION
  Report Type: Other
  Country: CA (occurrence: CA)
  Receive Date: 20190722
  Receipt Date: 20190722
  Transmission Date: 20191004
  Serious: Yes (Hospitalization)
  Sender: FDA-Public Use
  Company Number: CA-PFIZER INC-2019308045

PATIENT
  Age: 2 Year
  Sex: Female

DRUGS (3)
  1. FIBRIN SEALANT NOS [Suspect]
     Active Substance: FIBRINOGEN HUMAN\THROMBIN HUMAN
     Indication: RETINOBLASTOMA
     Dosage: UNK, EVERY 3 WEEKS
     Route: 061
  2. FIBRIN SEALANT NOS [Suspect]
     Active Substance: FIBRINOGEN HUMAN\THROMBIN HUMAN
     Indication: OFF LABEL USE
  3. TOPOTECAN HYDROCHLORIDE. [Suspect]
     Active Substance: TOPOTECAN HYDROCHLORIDE
     Indication: RETINOBLASTOMA
     Dosage: 1.73 MG, EVERY 3 WEEKS
     Route: 061

REACTIONS (3)
  - Laryngeal oedema [Recovered/Resolved]
  - Swelling of eyelid [Recovered/Resolved]
  - Urticaria [Recovered/Resolved]
